FAERS Safety Report 4468591-2 (Version None)
Quarter: 2004Q3

REPORT INFORMATION
  Report Type: 
  Country: None (occurrence: None)
  Receive Date: 20040917
  Receipt Date: 20040622
  Transmission Date: 20050211
  Serious: No
  Sender: FDA-Public Use
  Company Number: US-JNJFOC-20040505439

PATIENT
  Age: 28 Year
  Sex: Female
  Weight: 68.0396 kg

DRUGS (7)
  1. ORTHO EVRA [Suspect]
     Indication: CONTRACEPTION
     Dosage: 1 DOSE (S), 3 IN 4 WEEK, TRANSDERMAL
     Route: 062
     Dates: start: 20031101
  2. ORTHO EVRA [Suspect]
     Indication: MENSTRUAL DISORDER
     Dosage: 1 DOSE (S), 3 IN 4 WEEK, TRANSDERMAL
     Route: 062
     Dates: start: 20031101
  3. ALBUTEROL [Concomitant]
  4. ADVAIR (SERETIDE MITE) [Concomitant]
  5. NASAL SPRAY (NASAL DECONGESTANTS FOR SYTEMIC USE) [Concomitant]
  6. ZYRTEC [Concomitant]
  7. PREVACID [Concomitant]

REACTIONS (2)
  - BACK PAIN [None]
  - METRORRHAGIA [None]
